FAERS Safety Report 16630707 (Version 1)
Quarter: 2019Q3

REPORT INFORMATION
  Report Type: Spontaneous
  Country: US (occurrence: US)
  Receive Date: 20190613
  Receipt Date: 20190613
  Transmission Date: 20191004
  Serious: Yes (Hospitalization)
  Sender: FDA-Public Use
  Company Number: None

PATIENT
  Age: 66 Year
  Sex: Male
  Weight: 80 kg

DRUGS (6)
  1. EPCLUSA [Concomitant]
     Active Substance: SOFOSBUVIR\VELPATASVIR
  2. LOSARTAN. [Concomitant]
     Active Substance: LOSARTAN
  3. VIMPAT [Concomitant]
     Active Substance: LACOSAMIDE
  4. FUROSEMIDE 40MG [Concomitant]
     Active Substance: FUROSEMIDE
  5. RIBAVIRIN 200MG [Suspect]
     Active Substance: RIBAVIRIN
     Indication: CHRONIC HEPATITIS C
     Route: 048
     Dates: start: 20190423
  6. ASPRIN 81 MG [Concomitant]

REACTIONS (2)
  - Pain in extremity [None]
  - Anaemia [None]

NARRATIVE: CASE EVENT DATE: 20190606
